FAERS Safety Report 7200684-9 (Version None)
Quarter: 2010Q4

REPORT INFORMATION
  Report Type: 
  Country: None (occurrence: None)
  Receive Date: 20101228
  Receipt Date: 20101221
  Transmission Date: 20110411
  Serious: Yes (Other)
  Sender: FDA-Public Use
  Company Number: GB-PFIZER INC-2010177099

PATIENT
  Age: 59 Year
  Sex: Female

DRUGS (2)
  1. FESOTERODINE [Suspect]
     Indication: BLADDER DISORDER
     Dosage: 4 MG, UNK
     Route: 048
     Dates: start: 20100219, end: 20100621
  2. AMOXICILLIN [Concomitant]
     Indication: LOWER RESPIRATORY TRACT INFECTION
     Dosage: 500 MG, UNK
     Dates: start: 20100518

REACTIONS (1)
  - LIVER FUNCTION TEST ABNORMAL [None]
